FAERS Safety Report 21682474 (Version 1)
Quarter: 2022Q4

REPORT INFORMATION
  Report Type: Spontaneous
  Country: US (occurrence: US)
  Receive Date: 20221205
  Receipt Date: 20221205
  Transmission Date: 20230113
  Serious: Yes (Hospitalization, Other)
  Sender: FDA-Public Use
  Company Number: US-009507513-2211USA009408

PATIENT
  Sex: Female

DRUGS (2)
  1. WELIREG [Suspect]
     Active Substance: BELZUTIFAN
     Dosage: UNK
     Route: 048
     Dates: start: 202207, end: 2022
  2. WELIREG [Suspect]
     Active Substance: BELZUTIFAN
     Dosage: UNK
     Dates: start: 202211

REACTIONS (2)
  - Pulmonary embolism [Not Recovered/Not Resolved]
  - Acute hepatic failure [Not Recovered/Not Resolved]

NARRATIVE: CASE EVENT DATE: 20220901
